FAERS Safety Report 5930481-3 (Version None)
Quarter: 2008Q4

REPORT INFORMATION
  Report Type: 
  Country: None (occurrence: None)
  Receive Date: 20081025
  Receipt Date: 20081017
  Transmission Date: 20090506
  Serious: Yes (Other)
  Sender: FDA-Public Use
  Company Number: GB-BAUSCH-2008BL004478

PATIENT
  Age: 39 Year
  Sex: Female

DRUGS (5)
  1. PREDNISOLONE [Suspect]
     Indication: CONJUNCTIVITIS
  2. CYCLOSPORINE [Suspect]
     Indication: CONJUNCTIVITIS
     Dates: start: 20050901
  3. CYCLOPHOSPHAMIDE [Suspect]
     Indication: CONJUNCTIVITIS
     Dates: start: 20060301
  4. DAPSONE [Suspect]
     Indication: CONJUNCTIVITIS
     Dates: start: 20060201, end: 20060301
  5. MYCOPHENOLATE SODIUM [Suspect]
     Indication: CONJUNCTIVITIS
     Dates: start: 20051101, end: 20060301

REACTIONS (2)
  - DRUG INEFFECTIVE [None]
  - EYE INFECTION STAPHYLOCOCCAL [None]
